FAERS Safety Report 16511669 (Version 2)
Quarter: 2019Q3

REPORT INFORMATION
  Report Type: Spontaneous
  Country: IS (occurrence: IS)
  Receive Date: 20190701
  Receipt Date: 20190703
  Transmission Date: 20191004
  Serious: No
  Sender: FDA-Public Use
  Company Number: PHHY2016IS031591

PATIENT
  Age: 31 Year
  Sex: Female
  Weight: 74 kg

DRUGS (2)
  1. ZOFRAN [Suspect]
     Active Substance: ONDANSETRON HYDROCHLORIDE
     Indication: MORNING SICKNESS
     Dosage: 12 MG, UNK
     Route: 048
     Dates: start: 20160216
  2. ZOFRAN [Suspect]
     Active Substance: ONDANSETRON HYDROCHLORIDE
     Indication: NAUSEA

REACTIONS (3)
  - Product use issue [Unknown]
  - Stillbirth [Unknown]
  - Exposure during pregnancy [Unknown]
